FAERS Safety Report 5908729-0 (Version None)
Quarter: 2008Q4

REPORT INFORMATION
  Report Type: 
  Country: None (occurrence: None)
  Receive Date: 20081006
  Receipt Date: 20080925
  Transmission Date: 20090506
  Serious: Yes (Hospitalization)
  Sender: FDA-Public Use
  Company Number: B0538754A

PATIENT
  Age: 83 Year
  Sex: Female

DRUGS (8)
  1. ARIXTRA [Suspect]
     Indication: PHLEBITIS
     Dosage: 7.5MG PER DAY
     Route: 058
     Dates: end: 20080728
  2. ZYLORIC [Concomitant]
     Dosage: 200MG PER DAY
     Route: 048
  3. PROTHIADEN [Concomitant]
     Dosage: 2UNIT PER DAY
     Route: 065
  4. LEXOMIL [Concomitant]
     Dosage: .75UNIT PER DAY
     Route: 065
  5. STILNOX [Concomitant]
     Dosage: 1UNIT PER DAY
     Route: 065
  6. TARDYFERON [Concomitant]
     Dosage: 2UNIT PER DAY
     Route: 065
  7. FORLAX [Concomitant]
     Dosage: 2UNIT PER DAY
     Route: 065
  8. NEXIUM [Concomitant]
     Dosage: 40MG PER DAY
     Route: 065

REACTIONS (3)
  - HAEMOGLOBIN DECREASED [None]
  - INTRA-ABDOMINAL HAEMATOMA [None]
  - LEUKOCYTOSIS [None]
